FAERS Safety Report 5141931-7 (Version None)
Quarter: 2006Q4

REPORT INFORMATION
  Report Type: 
  Country: None (occurrence: None)
  Receive Date: 20061102
  Receipt Date: 20061016
  Transmission Date: 20070319
  Serious: Yes (Other)
  Sender: FDA-Public Use
  Company Number: PHBS2006NO16175

PATIENT
  Age: 5 Year
  Sex: Female

DRUGS (4)
  1. DALACIN [Suspect]
  2. KEPPRA [Suspect]
  3. VALPROATE SODIUM [Suspect]
  4. TRILEPTAL [Suspect]

REACTIONS (1)
  - EPILEPSY [None]
